FAERS Safety Report 4781095-2 (Version None)
Quarter: 2005Q3

REPORT INFORMATION
  Report Type: 
  Country: None (occurrence: None)
  Receive Date: 20050926
  Receipt Date: 20050916
  Transmission Date: 20060218
  Serious: Yes (Other)
  Sender: FDA-Public Use
  Company Number: 2005-09-0927

PATIENT
  Age: 46 Year
  Sex: Female

DRUGS (4)
  1. VIRAFERONPEG [Suspect]
     Dosage: 1.5 UG/KG/QWK
  2. REBETOL [Suspect]
     Dosage: ORAL
     Route: 048
  3. ZELITREX (VALACICLOVIR) [Suspect]
     Dosage: ORAL
     Route: 048
  4. ZOVIRAX [Suspect]

REACTIONS (4)
  - DRUG INTERACTION [None]
  - LEUKOPENIA [None]
  - MENORRHAGIA [None]
  - THROMBOCYTOPENIA [None]
